FAERS Safety Report 10022193 (Version 2)
Quarter: 2014Q1

REPORT INFORMATION
  Report Type: Report from Study
  Country: DE (occurrence: DE)
  Receive Date: 20140319
  Receipt Date: 20140324
  Transmission Date: 20141002
  Serious: Yes (Hospitalization)
  Sender: FDA-Public Use
  Company Number: DE-GLAXOSMITHKLINE-B0977803A

PATIENT
  Sex: Male

DRUGS (3)
  1. PAZOPANIB [Suspect]
     Indication: METASTATIC RENAL CELL CARCINOMA
     Dosage: 200MG PER DAY
     Dates: start: 20130625
  2. METFORMIN [Concomitant]
     Dosage: 2000MG PER DAY
     Dates: start: 1985, end: 20140312
  3. EUTHYROX [Concomitant]
     Dosage: 75MCG PER DAY
     Dates: start: 1983

REACTIONS (1)
  - Hypoglycaemia [Recovered/Resolved]
